FAERS Safety Report 4416268-1 (Version None)
Quarter: 2004Q2

REPORT INFORMATION
  Report Type: 
  Country: None (occurrence: None)
  Receive Date: 20040625
  Receipt Date: 20040405
  Transmission Date: 20050107
  Serious: No
  Sender: FDA-Public Use
  Company Number: 205888

PATIENT
  Age: 56 Year
  Sex: Male
  Weight: 99.3 kg

DRUGS (3)
  1. AVASTIN [Suspect]
     Indication: COLORECTAL CANCER METASTATIC
     Dosage: 500 MG, Q2W , INTRAVENOUS
     Route: 042
     Dates: start: 20040316
  2. FLUOROURACIL [Suspect]
     Indication: COLORECTAL CANCER METASTATIC
     Dosage: 5370 MG, INTRAVENOUS
     Route: 042
     Dates: start: 20040318
  3. LEUCOVORIN CALCIUM [Concomitant]

REACTIONS (2)
  - CHEST DISCOMFORT [None]
  - MYALGIA [None]
